FAERS Safety Report 15945727 (Version 1)
Quarter: 2019Q1

REPORT INFORMATION
  Report Type: Spontaneous
  Country: SK (occurrence: SK)
  Receive Date: 20190211
  Receipt Date: 20190211
  Transmission Date: 20190417
  Serious: Yes (Other)
  Sender: FDA-Public Use
  Company Number: SK-ACCORD-105708

PATIENT
  Age: 36 Year
  Sex: Male

DRUGS (8)
  1. ETOPOSIDE. [Suspect]
     Active Substance: ETOPOSIDE
     Indication: HODGKIN^S DISEASE
     Dosage: UNK UNK, UNKNOWN FREQ. (PART OF BEEAM REGIMEN)
     Route: 065
     Dates: start: 201509, end: 201509
  2. DEXAMETHASONE. [Suspect]
     Active Substance: DEXAMETHASONE
     Indication: HODGKIN^S DISEASE
     Dosage: UNK UNK, UNKNOWN FREQ. (PART OF DHAP CHEMOTHERAPY)
     Route: 065
     Dates: start: 201509, end: 201509
  3. BENDAMUSTINE/BENDAMUSTINE HYDROCHLORIDE [Suspect]
     Active Substance: BENDAMUSTINE HYDROCHLORIDE
     Indication: HODGKIN^S DISEASE
     Dosage: UNK UNK, UNKNOWN FREQ. (PART OF BEEAM REGIMEN)
     Route: 042
     Dates: start: 201509, end: 201509
  4. MELPHALAN. [Suspect]
     Active Substance: MELPHALAN
     Indication: HODGKIN^S DISEASE
     Dosage: UNK UNK, UNKNOWN FREQ. (PART OF BEEAM REGIMEN)
     Route: 065
     Dates: start: 201509, end: 201509
  5. RITUXIMAB. [Suspect]
     Active Substance: RITUXIMAB
     Indication: HODGKIN^S DISEASE
     Dosage: UNK UNK, UNKNOWN FREQ. (PART OF DHAP CHEMOTHERAPY)
     Route: 065
     Dates: start: 201509, end: 201509
  6. CISPLATIN. [Suspect]
     Active Substance: CISPLATIN
     Indication: HODGKIN^S DISEASE
     Dosage: UNK UNK, UNKNOWN FREQ. (PART OF DHAP CHEMOTHERAPY)
     Route: 065
     Dates: start: 201509, end: 201509
  7. CYTARABINE/CYTARABINE HYDROCHLORIDE/CYTARABINE OCFOSFATE [Suspect]
     Active Substance: CYTARABINE
     Indication: HODGKIN^S DISEASE
     Dosage: UNK UNK, UNKNOWN FREQ. (PART OF DHAP CHEMOTHERAPY)
     Route: 065
     Dates: start: 201509
  8. CYTARABINE. [Suspect]
     Active Substance: CYTARABINE
     Indication: PRODUCT USED FOR UNKNOWN INDICATION
     Dosage: (PART OF BEEAM REGIMEN), CYCLIC
     Route: 065
     Dates: start: 201509, end: 201509

REACTIONS (4)
  - Nephropathy [Unknown]
  - Renal impairment [Unknown]
  - Neoplasm progression [Recovered/Resolved]
  - Off label use [Unknown]

NARRATIVE: CASE EVENT DATE: 201509
